FAERS Safety Report 6473930-7 (Version None)
Quarter: 2009Q4

REPORT INFORMATION
  Report Type: 
  Country: None (occurrence: None)
  Receive Date: 20091204
  Receipt Date: 20091014
  Transmission Date: 20100525
  Serious: No
  Sender: FDA-Public Use
  Company Number: A0811802A

PATIENT
  Age: 27 Year
  Sex: Male

DRUGS (2)
  1. LAMICTAL [Suspect]
     Indication: BIPOLAR DISORDER
     Dosage: 25MG PER DAY
     Route: 048
     Dates: start: 20091010
  2. NO CONCURRENT MEDICATION [Concomitant]

REACTIONS (3)
  - ERYTHEMA [None]
  - EYE IRRITATION [None]
  - PRURITUS GENERALISED [None]
